FAERS Safety Report 16021675 (Version 1)
Quarter: 2019Q1

REPORT INFORMATION
  Report Type: Spontaneous
  Country: ES (occurrence: ES)
  Receive Date: 20190301
  Receipt Date: 20190301
  Transmission Date: 20190418
  Serious: Yes (Other)
  Sender: FDA-Public Use
  Company Number: ES-ACCORD-109909

PATIENT
  Age: 42 Year
  Sex: Female

DRUGS (1)
  1. TACROLIMUS. [Suspect]
     Active Substance: TACROLIMUS
     Indication: LIVER TRANSPLANT
     Route: 048
     Dates: start: 20120510, end: 20120514

REACTIONS (2)
  - Agitation [Recovered/Resolved]
  - Locked-in syndrome [Recovered/Resolved]

NARRATIVE: CASE EVENT DATE: 20120514
